FAERS Safety Report 23056754 (Version 1)
Quarter: 2023Q4

REPORT INFORMATION
  Report Type: Report from Study
  Country: EG (occurrence: EG)
  Receive Date: 20231012
  Receipt Date: 20231012
  Transmission Date: 20240110
  Serious: Yes (Other)
  Sender: FDA-Public Use
  Company Number: EG-002147023-NVSC2023EG216767

PATIENT
  Age: 56 Year
  Sex: Female

DRUGS (14)
  1. LEQVIO [Suspect]
     Active Substance: INCLISIRAN SODIUM
     Indication: Hypercholesterolaemia
     Dosage: 1 DOSAGE FORM (ONE DOSE INITIALLY, SECOND DOSE AFTER 3 MONTHS AND THEN TO BE EVERY 6 MONTHS)
     Route: 058
     Dates: start: 2022
  2. FOSAMAX [Concomitant]
     Active Substance: ALENDRONATE SODIUM
     Indication: Osteoporosis
     Dosage: UNK, QW
     Route: 048
     Dates: start: 2015, end: 2022
  3. PLAQUENIL [Concomitant]
     Active Substance: HYDROXYCHLOROQUINE SULFATE
     Indication: Rheumatoid arthritis
     Dosage: 2 DOSAGE FORM, BID (STOPPED ONE MONTH AGO)
     Route: 048
     Dates: start: 2006
  4. NEWBEZIM [Concomitant]
     Indication: Limb discomfort
     Dosage: 3 DOSAGE FORM, QD
     Route: 048
     Dates: start: 20230818
  5. SULFASALAZINE [Concomitant]
     Active Substance: SULFASALAZINE
     Indication: Rheumatoid arthritis
     Dosage: UNK, QD
     Route: 048
     Dates: start: 20230818
  6. CARVEDILOL [Concomitant]
     Active Substance: CARVEDILOL
     Indication: Cardiac disorder
     Dosage: UNK, BID
     Route: 048
     Dates: start: 2016
  7. LASIX [Concomitant]
     Active Substance: FUROSEMIDE
     Indication: Cardiac disorder
     Dosage: UNK, QD
     Route: 048
     Dates: start: 2016
  8. JUSPRIN [Concomitant]
     Indication: Anticoagulant therapy
     Dosage: UNK, QD
     Route: 048
     Dates: start: 2016
  9. ENTRESTO [Concomitant]
     Active Substance: SACUBITRIL\VALSARTAN
     Indication: Cardiac disorder
     Dosage: 2 DOSAGE FORM, QD 100 MG (START: 4 YEARS AGO)
     Route: 048
  10. ENTRESTO [Concomitant]
     Active Substance: SACUBITRIL\VALSARTAN
     Dosage: 2 DOSAGE FORM, QD 50 MG (STOP DATE: STOPPED 2 OR 3 YEARS AGO))
     Route: 048
  11. CORDARONE [Concomitant]
     Active Substance: AMIODARONE HYDROCHLORIDE
     Indication: Cardiac disorder
     Dosage: UNK, QD (START: ONE OR TWO YEARS AGO)
     Route: 048
  12. CALMAG [Concomitant]
     Indication: Mineral supplementation
     Dosage: UNK, QD
     Route: 048
     Dates: start: 2008
  13. PEPZOL [Concomitant]
     Indication: Abdominal discomfort
     Dosage: UNK, QD
     Route: 048
     Dates: start: 2015
  14. PANADOL [Concomitant]
     Active Substance: ACETAMINOPHEN
     Indication: Analgesic therapy
     Dosage: UNK, BID
     Route: 048
     Dates: start: 2015

REACTIONS (1)
  - Blood cholesterol increased [Unknown]

NARRATIVE: CASE EVENT DATE: 20230917
